FAERS Safety Report 13974805 (Version 2)
Quarter: 2017Q4

REPORT INFORMATION
  Report Type: Spontaneous
  Country: US (occurrence: US)
  Receive Date: 20170914
  Receipt Date: 20171018
  Transmission Date: 20180321
  Serious: Yes (Hospitalization, Other)
  Sender: FDA-Public Use
  Company Number: US-ASTELLAS-2017US032264

PATIENT
  Age: 83 Year
  Sex: Male

DRUGS (1)
  1. XTANDI [Suspect]
     Active Substance: ENZALUTAMIDE
     Indication: PROSTATE CANCER
     Route: 048
     Dates: start: 20170209

REACTIONS (7)
  - Malignant neoplasm progression [Unknown]
  - Asthenia [Unknown]
  - Drug ineffective [Unknown]
  - Gait disturbance [Unknown]
  - Diarrhoea [Recovering/Resolving]
  - Prostatic specific antigen increased [Unknown]
  - Fall [Unknown]

NARRATIVE: CASE EVENT DATE: 201706
